FAERS Safety Report 12859119 (Version 1)
Quarter: 2016Q4

REPORT INFORMATION
  Report Type: Spontaneous
  Country: US (occurrence: US)
  Receive Date: 20161018
  Receipt Date: 20161018
  Transmission Date: 20170207
  Serious: Yes (Hospitalization)
  Sender: FDA-Public Use
  Company Number: US-IPCA LABORATORIES LIMITED-IPC201610-000853

PATIENT
  Age: 58 Year
  Sex: Male

DRUGS (4)
  1. APIXABAN [Concomitant]
     Active Substance: APIXABAN
  2. ACETYLSALICYLIC ACID [Concomitant]
     Active Substance: ASPIRIN
  3. APIXABAN [Concomitant]
     Active Substance: APIXABAN
  4. WARFARIN [Suspect]
     Active Substance: WARFARIN

REACTIONS (3)
  - Melaena [Unknown]
  - Arteriovenous malformation [Unknown]
  - Anaemia [Unknown]
